FAERS Safety Report 4863369-X (Version None)
Quarter: 2005Q4

REPORT INFORMATION
  Report Type: 
  Country: None (occurrence: None)
  Receive Date: 20051222
  Receipt Date: 20041101
  Transmission Date: 20060501
  Serious: No
  Sender: FDA-Public Use
  Company Number: US-GLAXOSMITHKLINE-A0532045A

PATIENT
  Age: 61 Year
  Sex: Female

DRUGS (6)
  1. FLONASE [Suspect]
     Route: 045
     Dates: start: 20000101, end: 20021201
  2. VERAPAMIL [Concomitant]
  3. HYDROCHLOROTHIAZIDE [Concomitant]
  4. LIPITOR [Concomitant]
  5. DIAVAN [Concomitant]
  6. GLUCOPHAGE [Concomitant]

REACTIONS (3)
  - EPISTAXIS [None]
  - HEADACHE [None]
  - TREMOR [None]
